FAERS Safety Report 10357159 (Version 1)
Quarter: 2014Q3

REPORT INFORMATION
  Report Type: Spontaneous
  Country: US (occurrence: US)
  Receive Date: 20140801
  Receipt Date: 20140801
  Transmission Date: 20150326
  Serious: Yes (Other)
  Sender: FDA-Public Use
  Company Number: PHHY2014US092301

PATIENT
  Age: 47 Year
  Sex: Male

DRUGS (1)
  1. TOBRAMYCIN [Suspect]
     Active Substance: TOBRAMYCIN
     Dosage: 2.4 G, UNK

REACTIONS (12)
  - Lethargy [Recovered/Resolved]
  - Vision blurred [Recovered/Resolved]
  - Pupillary reflex impaired [Recovered/Resolved]
  - Eyelid ptosis [Recovered/Resolved]
  - Nausea [Recovered/Resolved]
  - Ophthalmoplegia [Recovered/Resolved]
  - Botulism [Recovered/Resolved]
  - Concomitant disease aggravated [Recovered/Resolved]
  - Dysarthria [Recovered/Resolved]
  - Hyporeflexia [Recovered/Resolved]
  - Muscular weakness [Recovered/Resolved]
  - Dysphagia [Recovered/Resolved]
